FAERS Safety Report 8483698-0 (Version None)
Quarter: 2012Q3

REPORT INFORMATION
  Report Type: 
  Country: None (occurrence: None)
  Receive Date: 20120703
  Receipt Date: 20120621
  Transmission Date: 20120928
  Serious: Yes (Disabling)
  Sender: FDA-Public Use
  Company Number: GB-ACCORD-013907

PATIENT
  Age: 72 Year
  Sex: Female
  Weight: 84 kg

DRUGS (9)
  1. BEZAFIBRATE [Concomitant]
     Dates: start: 20120529
  2. ACETAMINOPHEN AND CODEINE PHOSPHATE [Concomitant]
     Dates: start: 20120529
  3. VALSARTAN [Concomitant]
     Dates: start: 20120529
  4. LANSOPRAZOLE [Concomitant]
     Dates: start: 20120529
  5. PLAVIX [Concomitant]
     Dates: start: 20120529
  6. LEVOTHYROXINE SODIUM [Concomitant]
     Dates: start: 20120529
  7. SIMVASTATIN [Suspect]
  8. BISOPROLOL FUMARATE [Concomitant]
     Dates: start: 20120529
  9. ASPIRIN [Concomitant]
     Dates: start: 20120529

REACTIONS (3)
  - MASS [None]
  - PAIN IN EXTREMITY [None]
  - OEDEMA PERIPHERAL [None]
